FAERS Safety Report 17516642 (Version 1)
Quarter: 2020Q1

REPORT INFORMATION
  Report Type: Spontaneous
  Country: US (occurrence: US)
  Receive Date: 20200306
  Receipt Date: 20200306
  Transmission Date: 20200409
  Serious: No
  Sender: FDA-Public Use
  Company Number: None

PATIENT

DRUGS (2)
  1. CARBIDOPA/LEVADOPA [Concomitant]
  2. CARBIDOPA/LEVADOPA 10/100 GTT [Suspect]
     Active Substance: CARBIDOPA\LEVODOPA

REACTIONS (1)
  - Product label confusion [None]

NARRATIVE: CASE EVENT DATE: 20191205
